FAERS Safety Report 9755511 (Version 1)
Quarter: 2013Q4

REPORT INFORMATION
  Report Type: Spontaneous
  Country: US (occurrence: US)
  Receive Date: 20131213
  Receipt Date: 20131213
  Transmission Date: 20140711
  Serious: No
  Sender: FDA-Public Use
  Company Number: US-GLAXOSMITHKLINE-A1019491A

PATIENT
  Age: 31 Year
  Sex: Female
  Weight: 68.2 kg

DRUGS (2)
  1. NICOTINE [Suspect]
     Indication: EX-TOBACCO USER
     Route: 065
     Dates: start: 2012
  2. NICORETTE [Suspect]
     Indication: EX-TOBACCO USER
     Route: 065
     Dates: start: 2012

REACTIONS (5)
  - Pruritus [Unknown]
  - Sensory disturbance [Unknown]
  - Dizziness [Unknown]
  - Hypersensitivity [Unknown]
  - Thermal burn [Unknown]
